FAERS Safety Report 8173582-4 (Version None)
Quarter: 2012Q1

REPORT INFORMATION
  Report Type: 
  Country: None (occurrence: None)
  Receive Date: 20120223
  Receipt Date: 20120210
  Transmission Date: 20120608
  Serious: Yes (Other)
  Sender: FDA-Public Use
  Company Number: 1000024734

PATIENT
  Age: 74 Year
  Sex: Female
  Weight: 78 kg

DRUGS (4)
  1. ESCITALOPRAM OXALATE [Suspect]
     Indication: DEPRESSION
     Dosage: 10 MG (10 MG, 1 IN 1 D),ORAL
     Route: 048
     Dates: start: 20111028, end: 20111103
  2. STAGIG (METFORMIN EMBONATE) (METFORMIN EMBONATE) [Concomitant]
  3. NISIS (VALSARTAN) (VALSARTAN) [Concomitant]
  4. OROCAL D3 (CALCIUM COLECALCIFEROL) (CALCIUM COLECACIFEROL) [Concomitant]

REACTIONS (3)
  - ABDOMINAL PAIN [None]
  - VIRAL INFECTION [None]
  - DIARRHOEA HAEMORRHAGIC [None]
